FAERS Safety Report 16919646 (Version 1)
Quarter: 2019Q4

REPORT INFORMATION
  Report Type: Spontaneous
  Country: US (occurrence: US)
  Receive Date: 20191015
  Receipt Date: 20191015
  Transmission Date: 20200122
  Serious: No
  Sender: FDA-Public Use
  Company Number: US-PERRIGO-18US014156

PATIENT
  Sex: Male
  Weight: 97.51 kg

DRUGS (4)
  1. NICOTINE POLACRILEX [Suspect]
     Active Substance: NICOTINE
     Dosage: 4 MG, EVERY 1 TO 2 HOURS, FOR 1 WEEK
     Route: 002
     Dates: start: 201811, end: 201811
  2. NICOTINE POLACRILEX [Suspect]
     Active Substance: NICOTINE
     Indication: TOBACCO USER
     Dosage: 4 MG, EVERY 1 TO 2 HOURS, FOR 10 DAYS
     Route: 002
     Dates: start: 2013, end: 2013
  3. EFFEXOR [Concomitant]
     Active Substance: VENLAFAXINE HYDROCHLORIDE
     Indication: DEPRESSION
     Dosage: UNK
     Route: 065
     Dates: start: 1984
  4. LOXAPINE. [Concomitant]
     Active Substance: LOXAPINE
     Indication: DEPRESSION
     Dosage: UNK
     Route: 065
     Dates: start: 1984

REACTIONS (2)
  - Off label use [Recovered/Resolved]
  - Therapeutic product effect decreased [Unknown]

NARRATIVE: CASE EVENT DATE: 2013
